FAERS Safety Report 10348808 (Version 1)
Quarter: 2014Q3

REPORT INFORMATION
  Report Type: Spontaneous
  Country: IN (occurrence: IN)
  Receive Date: 20140729
  Receipt Date: 20140729
  Transmission Date: 20150326
  Serious: Yes (Other)
  Sender: FDA-Public Use
  Company Number: ALCN2014IN004318

PATIENT
  Age: 70 Year
  Sex: Male

DRUGS (2)
  1. VIGAMOX [Suspect]
     Active Substance: MOXIFLOXACIN HYDROCHLORIDE
     Indication: POSTOPERATIVE CARE
     Dosage: 1 GTT, QID
     Route: 047
  2. PREDNISOLONE ACETATE SANDOZ [Suspect]
     Active Substance: PREDNISOLONE ACETATE
     Dosage: 1 GTT, Q2H
     Route: 047

REACTIONS (4)
  - Off label use [Recovered/Resolved]
  - Corneal oedema [Recovered/Resolved]
  - Cystoid macular oedema [Recovered/Resolved]
  - Graft complication [Recovered/Resolved]
